FAERS Safety Report 6779369-9 (Version None)
Quarter: 2010Q2

REPORT INFORMATION
  Report Type: 
  Country: None (occurrence: None)
  Receive Date: 20100618
  Receipt Date: 20100609
  Transmission Date: 20101027
  Serious: Yes (Other)
  Sender: FDA-Public Use
  Company Number: PHHY2010FR37964

PATIENT
  Age: 17 Year
  Sex: Male
  Weight: 62 kg

DRUGS (2)
  1. TEGRETOL [Suspect]
     Indication: AKATHISIA
     Dosage: 4.8 MG DAILY (1.8 MG IN THE MORNING, 1.2 MG AT 16 HOURS AND 1.8 MG IN THE EVENING)
     Route: 048
     Dates: start: 20100311
  2. TEGRETOL [Suspect]
     Dosage: 3 TO 3.2 MG DAILY (1.2MG - 0.6 TO 0.8 MG - 1.2MG)

REACTIONS (5)
  - ABNORMAL BEHAVIOUR [None]
  - AGITATION [None]
  - ANXIETY [None]
  - PHOBIA [None]
  - WEIGHT INCREASED [None]
